FAERS Safety Report 20859473 (Version 1)
Quarter: 2022Q2

REPORT INFORMATION
  Report Type: Report from Study
  Country: US (occurrence: US)
  Receive Date: 20220523
  Receipt Date: 20220523
  Transmission Date: 20220721
  Serious: Yes (Other)
  Sender: FDA-Public Use
  Company Number: US-ABBVIE-22K-163-4402735-00

PATIENT
  Age: 71 Year
  Sex: Female

DRUGS (5)
  1. SKYRIZI [Suspect]
     Active Substance: RISANKIZUMAB-RZAA
     Indication: Psoriasis
     Route: 058
  2. MODERNA COVID-19 VACCINE [Concomitant]
     Active Substance: ELASOMERAN
     Indication: COVID-19 immunisation
     Route: 030
     Dates: start: 20210301, end: 20210301
  3. MODERNA COVID-19 VACCINE [Concomitant]
     Active Substance: ELASOMERAN
     Route: 030
     Dates: start: 20210329, end: 20210329
  4. MODERNA COVID-19 VACCINE [Concomitant]
     Active Substance: ELASOMERAN
     Dosage: 1ST BOOSTER VACCINE
     Route: 030
     Dates: start: 20211103, end: 20211103
  5. MODERNA COVID-19 VACCINE [Concomitant]
     Active Substance: ELASOMERAN
     Dosage: 2ND BOOSTER VACCINE
     Route: 030
     Dates: start: 20220518, end: 20220518

REACTIONS (1)
  - Knee arthroplasty [Unknown]

NARRATIVE: CASE EVENT DATE: 20220301
